FAERS Safety Report 8374625-5 (Version None)
Quarter: 2012Q2

REPORT INFORMATION
  Report Type: 
  Country: None (occurrence: None)
  Receive Date: 20120521
  Receipt Date: 20110829
  Transmission Date: 20120825
  Serious: No
  Sender: FDA-Public Use
  Company Number: US-ASTRAZENECA-2011SE59072

PATIENT
  Sex: Male

DRUGS (4)
  1. PRILOSEC OTC [Suspect]
     Indication: DYSPEPSIA
     Route: 048
     Dates: start: 20110811, end: 20110825
  2. BLOOD PRESSURE MEDICATION [Concomitant]
  3. ASPIRIN [Concomitant]
  4. XANAX [Concomitant]

REACTIONS (2)
  - DYSPEPSIA [None]
  - CONDITION AGGRAVATED [None]
